FAERS Safety Report 9779230 (Version 2)
Quarter: 2013Q4

REPORT INFORMATION
  Report Type: Spontaneous
  Country: US (occurrence: US)
  Receive Date: 20131223
  Receipt Date: 20131227
  Transmission Date: 20140711
  Serious: No
  Sender: FDA-Public Use
  Company Number: US-TEVA-450991USA

PATIENT
  Age: 63 Year
  Sex: Female
  Weight: 189 kg

DRUGS (6)
  1. AZILECT [Suspect]
     Indication: PARKINSON^S DISEASE
     Dates: start: 2005
  2. ROPINIROLE [Suspect]
     Dates: start: 2008
  3. LEXAPRO [Concomitant]
     Indication: DEPRESSION
     Dosage: 10 MILLIGRAM DAILY;
     Route: 048
  4. SINEMET [Concomitant]
     Indication: PARKINSON^S DISEASE
     Dosage: 25/100 MG, 2 TAB 2-3X QD
     Route: 048
  5. METOPROLOL [Concomitant]
     Indication: HYPERTENSION
     Dosage: 50 MILLIGRAM DAILY;
     Route: 048
  6. COENZYME Q10 [Concomitant]
     Route: 048

REACTIONS (14)
  - Pain [Not Recovered/Not Resolved]
  - Muscle spasms [Not Recovered/Not Resolved]
  - Fatigue [Not Recovered/Not Resolved]
  - Memory impairment [Not Recovered/Not Resolved]
  - Asthenia [Not Recovered/Not Resolved]
  - Parkinsonism [Not Recovered/Not Resolved]
  - Psychomotor skills impaired [Not Recovered/Not Resolved]
  - Feeling abnormal [Not Recovered/Not Resolved]
  - Feeling jittery [Not Recovered/Not Resolved]
  - Photophobia [Not Recovered/Not Resolved]
  - Arthralgia [Not Recovered/Not Resolved]
  - Bursitis [Not Recovered/Not Resolved]
  - Somnolence [Not Recovered/Not Resolved]
  - Sleep disorder [Recovered/Resolved]
